FAERS Safety Report 7880137-5 (Version None)
Quarter: 2011Q4

REPORT INFORMATION
  Report Type: 
  Country: None (occurrence: None)
  Receive Date: 20111101
  Receipt Date: 20111025
  Transmission Date: 20120403
  Serious: Yes (Death, Hospitalization)
  Sender: FDA-Public Use
  Company Number: JP-GENZYME-FLUD-1000374

PATIENT
  Sex: Male
  Weight: 64 kg

DRUGS (17)
  1. RITUXIMAB [Suspect]
     Indication: MANTLE CELL LYMPHOMA
     Dosage: 600 MG, QD (CYCLE 1)
     Route: 042
     Dates: start: 20070109, end: 20070111
  2. RITUXIMAB [Suspect]
     Dosage: 100 MG, QD (CYCLE 2)
     Route: 042
     Dates: start: 20070221, end: 20070221
  3. MITOXANTRONE HYDROCHLORIDE [Suspect]
     Indication: MANTLE CELL LYMPHOMA
     Dosage: 13.5 MG, QD (CYCLE 1)
     Route: 042
     Dates: start: 20070109, end: 20070109
  4. FLUDARA [Suspect]
     Dosage: 60 MG, QDX5 (CYCLE 3)
     Route: 048
     Dates: start: 20090530, end: 20090603
  5. CLADRIBINE [Suspect]
     Dosage: 7.74 MG, QD (CYCLE 2)
     Route: 065
     Dates: start: 20091013, end: 20091013
  6. VALSARTAN [Concomitant]
     Indication: HYPERTENSION
     Dosage: 80 MG, QD
     Route: 065
  7. FUROSEMIDE [Concomitant]
     Indication: OEDEMA
     Dosage: 20 MG, UNK
     Route: 065
     Dates: start: 20070110
  8. FLUDARA [Suspect]
     Indication: MANTLE CELL LYMPHOMA
     Dosage: 70 MG, QDX5 (CYCLE 1)
     Route: 048
     Dates: start: 20090124, end: 20090128
  9. CYCLOPHOSPHAMIDE [Suspect]
     Indication: MANTLE CELL LYMPHOMA
     Dosage: 338 MG, QD (CYCLE 1)
     Route: 042
     Dates: start: 20070109, end: 20070111
  10. VORICONAZOLE [Concomitant]
     Indication: ANTIFUNGAL PROPHYLAXIS
     Dosage: 50 MG, UNK
     Route: 065
  11. FLUDARA [Suspect]
     Dosage: 60 MG, QDX5 (CYCLE 2)
     Route: 048
     Dates: start: 20090307, end: 20090311
  12. FLUDARA [Suspect]
     Dosage: 34 MG, QD X 2 (CYCLE 2)
     Route: 042
     Dates: start: 20070222, end: 20070223
  13. CYCLOPHOSPHAMIDE [Suspect]
     Dosage: 400 MG, QD (CYCLE 2)
     Route: 042
     Dates: start: 20070222, end: 20070223
  14. ALLOPURINOL [Concomitant]
     Indication: HYPERURICAEMIA
     Dosage: 100 MG, QD
     Route: 065
  15. MITOXANTRONE HYDROCHLORIDE [Suspect]
     Dosage: 13.5 MG, QD (CYCLE 2)
     Route: 042
     Dates: start: 20070222, end: 20070222
  16. FLUDARA [Suspect]
     Dosage: 42.3 MG, QDX3 (CYCLE 1)
     Route: 042
     Dates: start: 20070109, end: 20070111
  17. CLADRIBINE [Suspect]
     Indication: MANTLE CELL LYMPHOMA
     Dosage: 7.74 MG, QD (CYCLE 1)
     Route: 065
     Dates: start: 20091007, end: 20091010

REACTIONS (2)
  - ADENOVIRAL HAEMORRHAGIC CYSTITIS [None]
  - MANTLE CELL LYMPHOMA [None]
